FAERS Safety Report 25216173 (Version 2)
Quarter: 2025Q2

REPORT INFORMATION
  Report Type: Report from Study
  Country: IE (occurrence: IE)
  Receive Date: 20250418
  Receipt Date: 20250509
  Transmission Date: 20250717
  Serious: Yes (Hospitalization)
  Sender: VERTEX
  Company Number: IE-VERTEX PHARMACEUTICALS-2025-005927

PATIENT
  Age: 12 Year
  Sex: Female
  Weight: 34 kg

DRUGS (5)
  1. ELEXACAFTOR\IVACAFTOR\TEZACAFTOR [Suspect]
     Active Substance: ELEXACAFTOR\IVACAFTOR\TEZACAFTOR
     Indication: Cystic fibrosis
     Dosage: 75MG IVA/ 50MG TEZA/ 100MG ELEXA; TWO TABS IN AM
     Route: 048
     Dates: start: 20250331, end: 20250407
  2. ELEXACAFTOR\IVACAFTOR\TEZACAFTOR [Suspect]
     Active Substance: ELEXACAFTOR\IVACAFTOR\TEZACAFTOR
     Dosage: 75MG IVA/ 50MG TEZA/ 100MG ELEXA; FREQ UNK
     Route: 048
     Dates: start: 20250418
  3. KALYDECO [Suspect]
     Active Substance: IVACAFTOR
     Indication: Cystic fibrosis
     Dosage: 150 MG, ONE TAB IN PM
     Route: 048
     Dates: start: 20250331, end: 20250407
  4. PIPERACILLIN SODIUM\TAZOBACTAM SODIUM [Suspect]
     Active Substance: PIPERACILLIN SODIUM\TAZOBACTAM SODIUM
     Indication: Product used for unknown indication
     Route: 065
  5. CHLORPHENIRAMINE [Concomitant]
     Active Substance: CHLORPHENIRAMINE
     Route: 042

REACTIONS (3)
  - Mycoplasma test positive [Recovered/Resolved]
  - Roseolovirus test positive [Recovered/Resolved]
  - Rash [Recovered/Resolved]

NARRATIVE: CASE EVENT DATE: 20250406
